FAERS Safety Report 9860678 (Version 1)
Quarter: 2014Q1

REPORT INFORMATION
  Report Type: Spontaneous
  Country: US (occurrence: US)
  Receive Date: 20140202
  Receipt Date: 20140202
  Transmission Date: 20141002
  Serious: No
  Sender: FDA-Public Use
  Company Number: US-ALLERGAN-1300604US

PATIENT
  Sex: Female

DRUGS (1)
  1. BOTOX [Suspect]
     Indication: HYPERHIDROSIS
     Dosage: 150 UNITS, SINGLE
     Route: 030

REACTIONS (4)
  - Cystitis [Unknown]
  - Rectal abscess [Unknown]
  - Herpes zoster [Unknown]
  - Eyelid ptosis [Not Recovered/Not Resolved]
